FAERS Safety Report 20448076 (Version 2)
Quarter: 2022Q3

REPORT INFORMATION
  Report Type: Report from Study
  Country: BR (occurrence: BR)
  Receive Date: 20220209
  Receipt Date: 20220801
  Transmission Date: 20221027
  Serious: Yes (Hospitalization, Other)
  Sender: FDA-Public Use
  Company Number: BR-JNJFOC-20220208142

PATIENT
  Age: 14 Year
  Sex: Female
  Weight: 39 kg

DRUGS (1)
  1. REMICADE [Suspect]
     Active Substance: INFLIXIMAB
     Indication: Crohn^s disease
     Dosage: 2 UNITS
     Route: 041

REACTIONS (3)
  - Infusion related reaction [Unknown]
  - Transfusion [Unknown]
  - Wound [Unknown]

NARRATIVE: CASE EVENT DATE: 20210101
